FAERS Safety Report 11138178 (Version 1)
Quarter: 2015Q2

REPORT INFORMATION
  Report Type: Report from Study
  Country: US (occurrence: US)
  Receive Date: 20150526
  Receipt Date: 20150526
  Transmission Date: 20150821
  Serious: Yes (Other)
  Sender: FDA-Public Use
  Company Number: US-SA-2014SA146867

PATIENT
  Age: 29 Year
  Sex: Male

DRUGS (1)
  1. AUBAGIO [Suspect]
     Active Substance: TERIFLUNOMIDE
     Indication: MULTIPLE SCLEROSIS
     Route: 048
     Dates: start: 20140822

REACTIONS (7)
  - Dysgraphia [Unknown]
  - Muscular weakness [Unknown]
  - Tremor [Unknown]
  - Activities of daily living impaired [Unknown]
  - Speech disorder [Unknown]
  - Multiple sclerosis relapse [Unknown]
  - Throat tightness [Unknown]
